FAERS Safety Report 20051071 (Version 16)
Quarter: 2024Q4

REPORT INFORMATION
  Report Type: Report from Study
  Country: JP (occurrence: JP)
  Receive Date: 20211110
  Receipt Date: 20241210
  Transmission Date: 20250115
  Serious: Yes (Other)
  Sender: TAKEDA
  Company Number: JP-TAKEDA-2021TJP114730

PATIENT
  Age: 53 Year
  Sex: Male

DRUGS (29)
  1. TEDUGLUTIDE [Suspect]
     Active Substance: TEDUGLUTIDE
     Indication: Short-bowel syndrome
     Dosage: 0.05 MILLIGRAM/KILOGRAM, QD
     Dates: start: 20211028
  2. TEDUGLUTIDE [Suspect]
     Active Substance: TEDUGLUTIDE
     Dosage: 0.038 MILLIGRAM/KILOGRAM
     Dates: start: 20230302, end: 20231010
  3. TEDUGLUTIDE [Suspect]
     Active Substance: TEDUGLUTIDE
     Dosage: 0.025 MILLIGRAM/KILOGRAM
     Dates: start: 20231011, end: 20240604
  4. TEDUGLUTIDE [Suspect]
     Active Substance: TEDUGLUTIDE
     Dosage: 0.03 MILLIGRAM/KILOGRAM
     Dates: start: 20240605, end: 20241023
  5. TEDUGLUTIDE [Suspect]
     Active Substance: TEDUGLUTIDE
     Dosage: UNK MILLIGRAM/KILOGRAM
  6. ENTYVIO [Concomitant]
     Active Substance: VEDOLIZUMAB
     Dosage: UNK
  7. VONOPRAZAN FUMARATE [Concomitant]
     Active Substance: VONOPRAZAN FUMARATE
     Dosage: UNK
  8. CALCIUM ASPARTATE [Concomitant]
     Active Substance: CALCIUM ASPARTATE
     Dosage: UNK
  9. MEPENZOLATE BROMIDE [Concomitant]
     Active Substance: MEPENZOLATE BROMIDE
     Dosage: UNK
  10. LAFUTIDINE [Concomitant]
     Active Substance: LAFUTIDINE
     Dosage: UNK
  11. BROTIZOLAM [Concomitant]
     Active Substance: BROTIZOLAM
     Dosage: UNK
  12. POTASSIUM ASPARTATE [Concomitant]
     Active Substance: POTASSIUM ASPARTATE
     Dosage: UNK
  13. CALONAL [Concomitant]
     Active Substance: ACETAMINOPHEN
     Dosage: UNK
  14. MORPHINE HYDROCHLORIDE [Concomitant]
     Active Substance: MORPHINE HYDROCHLORIDE
     Dosage: UNK
  15. FENTANYL [Concomitant]
     Active Substance: FENTANYL
     Dosage: UNK
  16. URSODIOL [Concomitant]
     Active Substance: URSODIOL
     Dosage: UNK
  17. REBAMIPIDE [Concomitant]
     Active Substance: REBAMIPIDE
     Dosage: UNK
  18. FLUCONAZOLE [Concomitant]
     Active Substance: FLUCONAZOLE
     Dosage: UNK
  19. FLUNITRAZEPAM [Concomitant]
     Active Substance: FLUNITRAZEPAM
     Dosage: UNK
  20. ZOLPIDEM TARTRATE [Concomitant]
     Active Substance: ZOLPIDEM TARTRATE
     Dosage: UNK
  21. CELECOXIB [Concomitant]
     Active Substance: CELECOXIB
     Dosage: UNK
  22. LOXOPROFEN SODIUM [Concomitant]
     Active Substance: LOXOPROFEN SODIUM
     Dosage: UNK
  23. MIYA-BM [Concomitant]
     Active Substance: CLOSTRIDIUM BUTYRICUM SPORES STRAIN M-55
     Dosage: UNK
  24. BUDESONIDE [Concomitant]
     Active Substance: BUDESONIDE
     Dosage: UNK
  25. TEPRENONE [Concomitant]
     Active Substance: TEPRENONE
     Dosage: UNK
  26. SILODOSIN OD [Concomitant]
     Dosage: UNK
  27. CARBOCYSTEINE [Concomitant]
     Active Substance: CARBOCYSTEINE
     Dosage: UNK
  28. SKYRIZI [Concomitant]
     Active Substance: RISANKIZUMAB-RZAA
     Dosage: UNK
  29. SKYRIZI [Concomitant]
     Active Substance: RISANKIZUMAB-RZAA
     Dosage: UNK

REACTIONS (13)
  - Stoma site haemorrhage [Not Recovered/Not Resolved]
  - Musculoskeletal pain [Unknown]
  - Weight increased [Unknown]
  - Stoma complication [Not Recovered/Not Resolved]
  - Injection site pain [Recovering/Resolving]
  - Stoma site pain [Not Recovered/Not Resolved]
  - Gastrointestinal stoma output abnormal [Unknown]
  - Abdominal distension [Unknown]
  - Abdominal pain upper [Recovering/Resolving]
  - Catheter site hypoaesthesia [Recovering/Resolving]
  - Abdominal pain [Not Recovered/Not Resolved]
  - Product use issue [Recovered/Resolved]
  - Product use issue [Recovering/Resolving]

NARRATIVE: CASE EVENT DATE: 20211030
